FAERS Safety Report 5110092-2 (Version None)
Quarter: 2006Q3

REPORT INFORMATION
  Report Type: 
  Country: None (occurrence: None)
  Receive Date: 20060919
  Receipt Date: 20060919
  Transmission Date: 20061208
  Serious: Yes (Hospitalization)
  Sender: FDA-Public Use
  Company Number: None

PATIENT
  Age: 82 Year
  Sex: Male
  Weight: 58 kg

DRUGS (9)
  1. MERCAPTOPURINE [Suspect]
     Indication: COLITIS ULCERATIVE
     Dosage: 50 MG DAILY PO
     Route: 048
     Dates: start: 20060628, end: 20060714
  2. MERCAPTOPURINE [Suspect]
     Indication: CROHN'S DISEASE
     Dosage: 50 MG DAILY PO
     Route: 048
     Dates: start: 20060628, end: 20060714
  3. MESALAMINE SA [Concomitant]
  4. MERCAPTOPURINE [Concomitant]
  5. PREDNISONE [Concomitant]
  6. OMEPRAZOLE [Concomitant]
  7. RANITIDINE [Concomitant]
  8. CIPROFLOXACIN [Concomitant]
  9. METRONIDAZOLE [Concomitant]

REACTIONS (17)
  - ASTHENIA [None]
  - BLOOD ALBUMIN DECREASED [None]
  - DUODENAL ULCER [None]
  - DUODENAL ULCER HAEMORRHAGE [None]
  - GASTROINTESTINAL HAEMORRHAGE [None]
  - HAEMATOCRIT DECREASED [None]
  - HYPOTENSION [None]
  - INTESTINAL PERFORATION [None]
  - LEUKOCYTOSIS [None]
  - NAUSEA [None]
  - PAIN [None]
  - PANCREATITIS ACUTE [None]
  - PROTEIN TOTAL DECREASED [None]
  - PYREXIA [None]
  - STAPHYLOCOCCAL BACTERAEMIA [None]
  - STREPTOCOCCAL BACTERAEMIA [None]
  - ULCER HAEMORRHAGE [None]
